FAERS Safety Report 9631841 (Version 1)
Quarter: 2013Q4

REPORT INFORMATION
  Report Type: Spontaneous
  Country: US (occurrence: None)
  Receive Date: 20131017
  Receipt Date: 20131017
  Transmission Date: 20140711
  Serious: Yes (Life-Threatening, Other)
  Sender: FDA-Public Use
  Company Number: None

PATIENT
  Age: 8 Year
  Sex: Male
  Weight: 22.68 kg

DRUGS (2)
  1. FOCALIN XR [Suspect]
     Indication: ATTENTION DEFICIT/HYPERACTIVITY DISORDER
     Dosage: 1 PILL ONCE DAILY
     Route: 048
     Dates: start: 20130919, end: 20131012
  2. FOCALIN XR [Suspect]
     Dosage: 1 PILL ONCE DAILY
     Route: 048
     Dates: start: 20130919, end: 20131012

REACTIONS (5)
  - Grand mal convulsion [None]
  - Loss of consciousness [None]
  - Blindness transient [None]
  - Dysarthria [None]
  - Dysstasia [None]
